FAERS Safety Report 8190954-2 (Version None)
Quarter: 2012Q1

REPORT INFORMATION
  Report Type: 
  Country: None (occurrence: None)
  Receive Date: 20120307
  Receipt Date: 20110615
  Transmission Date: 20120608
  Serious: Yes (Hospitalization)
  Sender: FDA-Public Use
  Company Number: AU-ACTELION-A-CH2011-49466

PATIENT
  Sex: Female

DRUGS (3)
  1. TRACLEER [Suspect]
     Indication: PULMONARY ARTERIAL HYPERTENSION
     Dosage: 62.5 MG, BID
     Route: 048
     Dates: start: 20101201
  2. TRACLEER [Suspect]
     Dosage: 1.27 G, UNK
     Route: 048
     Dates: start: 20110530, end: 20110530
  3. WARFARIN SODIUM [Suspect]
     Dosage: 125 UNK, UNK

REACTIONS (3)
  - SUICIDE ATTEMPT [None]
  - VOMITING [None]
  - INTENTIONAL OVERDOSE [None]
